FAERS Safety Report 8232069-0 (Version None)
Quarter: 2012Q1

REPORT INFORMATION
  Report Type: 
  Country: None (occurrence: None)
  Receive Date: 20120323
  Receipt Date: 20120321
  Transmission Date: 20120608
  Serious: Yes (Hospitalization)
  Sender: FDA-Public Use
  Company Number: US-MERCK-1103USA01909

PATIENT
  Age: 55 Year
  Sex: Female

DRUGS (5)
  1. CALCIUM (UNSPECIFIED) [Concomitant]
     Route: 065
     Dates: start: 20000101
  2. FOSAMAX [Suspect]
     Route: 048
     Dates: start: 20051205, end: 20101106
  3. FOSAMAX [Suspect]
     Indication: OSTEOPENIA
     Route: 048
     Dates: start: 20010727, end: 20101203
  4. VITAMIN D (UNSPECIFIED) [Concomitant]
     Route: 065
     Dates: start: 20000101
  5. ALENDRONATE SODIUM [Suspect]
     Indication: OSTEOPENIA
     Route: 048

REACTIONS (13)
  - VITREOUS DETACHMENT [None]
  - FALL [None]
  - BLOOD CHOLESTEROL INCREASED [None]
  - DRUG HYPERSENSITIVITY [None]
  - CONSTIPATION [None]
  - TACHYCARDIA [None]
  - DENTAL CARIES [None]
  - STAPHYLOCOCCUS TEST POSITIVE [None]
  - CATARACT [None]
  - WEIGHT LOSS POOR [None]
  - FEMUR FRACTURE [None]
  - VITREOUS FLOATERS [None]
  - ANAEMIA POSTOPERATIVE [None]
